FAERS Safety Report 16324828 (Version 1)
Quarter: 2019Q2

REPORT INFORMATION
  Report Type: Spontaneous
  Country: US (occurrence: US)
  Receive Date: 20190411
  Receipt Date: 20190411
  Transmission Date: 20190711
  Serious: Yes (Hospitalization)
  Sender: FDA-Public Use
  Company Number: None

PATIENT
  Age: 56 Year
  Sex: Female

DRUGS (1)
  1. MYCOPHENOLAT MOF CAP [Suspect]
     Active Substance: MYCOPHENOLATE MOFETIL
     Dates: start: 20180416

REACTIONS (2)
  - Brain neoplasm malignant [None]
  - Nervous system neoplasm surgery [None]

NARRATIVE: CASE EVENT DATE: 20190329
